FAERS Safety Report 8816125 (Version 2)
Quarter: 2013Q2

REPORT INFORMATION
  Report Type: Report from Study
  Country: JP (occurrence: JP)
  Receive Date: 20120929
  Receipt Date: 20130621
  Transmission Date: 20140414
  Serious: Yes (Other)
  Sender: FDA-Public Use
  Company Number: JP-009507513-1209JPN009768

PATIENT
  Age: 58 Year
  Sex: Female
  Weight: 81 kg

DRUGS (9)
  1. PEGINTRON [Suspect]
     Indication: CHRONIC HEPATITIS C
     Dosage: 120 MICROGRAM, QW
     Route: 058
     Dates: start: 20120604
  2. REBETOL [Suspect]
     Indication: CHRONIC HEPATITIS C
     Dosage: 1000 MG, QD
     Route: 048
     Dates: start: 20120604, end: 20120708
  3. REBETOL [Suspect]
     Dosage: UNK MG, QOD
     Route: 048
     Dates: start: 20120709, end: 20120721
  4. REBETOL [Suspect]
     Dosage: 800 MG, QOD
     Route: 048
     Dates: start: 20120710, end: 20120722
  5. REBETOL [Suspect]
     Dosage: 800 MG, QD
     Route: 048
     Dates: start: 20120723
  6. TELAVIC [Suspect]
     Indication: CHRONIC HEPATITIS C
     Dosage: 2250 MG, QD
     Route: 048
     Dates: start: 20120604, end: 20120730
  7. TALION (BEPOTASTINE BESYLATE) [Concomitant]
     Indication: PROPHYLAXIS
     Dosage: 20 MG, QD
     Route: 048
     Dates: start: 20120604
  8. RIKKUNSHI-TO [Concomitant]
     Indication: PROPHYLAXIS
     Dosage: 7.5 G, QD, FORMULATION: POR
     Route: 048
     Dates: start: 20120604
  9. LOXOPROFEN [Concomitant]
     Indication: PROPHYLAXIS
     Dosage: 180 MG, QD, FORMULATION:POR
     Route: 048
     Dates: start: 20120717, end: 20120723

REACTIONS (1)
  - Retinopathy [Recovering/Resolving]
